FAERS Safety Report 12938936 (Version 1)
Quarter: 2016Q4

REPORT INFORMATION
  Report Type: Spontaneous
  Country: US (occurrence: US)
  Receive Date: 20161114
  Receipt Date: 20161114
  Transmission Date: 20170207
  Serious: No
  Sender: FDA-Public Use
  Company Number: None

PATIENT
  Age: 57 Year
  Sex: Female
  Weight: 74.25 kg

DRUGS (6)
  1. ALPRAZOLAM. [Concomitant]
     Active Substance: ALPRAZOLAM
  2. VITAMIN FOR HAIR, SKIN AND NAILS [Concomitant]
  3. MELOXICAM. [Concomitant]
     Active Substance: MELOXICAM
  4. QSYMIA [Suspect]
     Active Substance: PHENTERMINE HYDROCHLORIDE\TOPIRAMATE
     Indication: WEIGHT DECREASED
     Dosage: QUANTITY:1 CAPSULE(S); ORAL; ?
     Route: 048
     Dates: start: 20160330, end: 20160822
  5. CALCIUM WITH D [Concomitant]
     Active Substance: CALCIUM\VITAMIN D
  6. PHENTERMINE. [Concomitant]
     Active Substance: PHENTERMINE

REACTIONS (1)
  - Alopecia [None]
